FAERS Safety Report 19381764 (Version 7)
Quarter: 2023Q1

REPORT INFORMATION
  Report Type: Other
  Country: EG (occurrence: None)
  Receive Date: 20210607
  Receipt Date: 20230308
  Transmission Date: 20230418
  Serious: Yes (Hospitalization)
  Sender: FDA-Public Use
  Company Number: EG-ROCHE-2840295

PATIENT
  Age: 37 Year
  Sex: Male
  Weight: 61 kg

DRUGS (22)
  1. OCRELIZUMAB [Suspect]
     Active Substance: OCRELIZUMAB
     Indication: Primary progressive multiple sclerosis
     Dosage: DOSING FORMULATION: 300 MG/250 ML, START TIME: 09:30, END TIME: 12.00
     Route: 042
     Dates: start: 20200207, end: 20200207
  2. OCRELIZUMAB [Suspect]
     Active Substance: OCRELIZUMAB
     Dosage: DOSING FORMULATION: 300 MG/250 ML, START TIME: 08:30, END TIME: 11.00 DOSE:260 ML
     Route: 042
     Dates: start: 20200221, end: 20200221
  3. OCRELIZUMAB [Suspect]
     Active Substance: OCRELIZUMAB
     Dosage: DOSING FORMULATION: 600 MG/500 ML, START TIME: 09:00, END TIME: 12.35, DOSE:520 ML
     Route: 042
     Dates: start: 20200813, end: 20200813
  4. OCRELIZUMAB [Suspect]
     Active Substance: OCRELIZUMAB
     Dosage: DOSING FORMULATION: 600 MG/500 ML, START TIME: 09:30, END TIME: 12.00
     Route: 042
     Dates: start: 20210315, end: 20210315
  5. OCRELIZUMAB [Suspect]
     Active Substance: OCRELIZUMAB
     Route: 042
     Dates: start: 20230112, end: 20230112
  6. OCRELIZUMAB [Suspect]
     Active Substance: OCRELIZUMAB
     Route: 042
     Dates: start: 20220601, end: 20220601
  7. OCRELIZUMAB [Suspect]
     Active Substance: OCRELIZUMAB
     Route: 042
     Dates: start: 20210925, end: 20210925
  8. TEGRETOL [Concomitant]
     Active Substance: CARBAMAZEPINE
     Route: 048
     Dates: start: 20200621, end: 20200629
  9. TEGRETOL [Concomitant]
     Active Substance: CARBAMAZEPINE
     Route: 048
     Dates: start: 20200629
  10. TEGRETOL [Concomitant]
     Active Substance: CARBAMAZEPINE
     Route: 048
     Dates: start: 20210315
  11. CONVENTIN [Concomitant]
     Dosage: 1 CAPSULE
     Route: 048
     Dates: start: 20200621
  12. METHYLPREDNISOLONE [Concomitant]
     Active Substance: METHYLPREDNISOLONE
     Indication: Premedication
     Route: 042
     Dates: start: 20200207, end: 20200207
  13. METHYLPREDNISOLONE [Concomitant]
     Active Substance: METHYLPREDNISOLONE
     Route: 042
     Dates: start: 20200221, end: 20200221
  14. METHYLPREDNISOLONE [Concomitant]
     Active Substance: METHYLPREDNISOLONE
     Route: 042
     Dates: start: 20200813, end: 20200813
  15. METHYLPREDNISOLONE [Concomitant]
     Active Substance: METHYLPREDNISOLONE
     Route: 042
     Dates: start: 20210315, end: 20210315
  16. PHENIRAMINE [Concomitant]
     Active Substance: PHENIRAMINE
     Indication: Premedication
     Route: 042
     Dates: start: 20200207, end: 20200207
  17. PHENIRAMINE [Concomitant]
     Active Substance: PHENIRAMINE
     Route: 042
     Dates: start: 20200221, end: 20200221
  18. PHENIRAMINE [Concomitant]
     Active Substance: PHENIRAMINE
     Route: 042
     Dates: start: 20200813, end: 20200813
  19. PHENIRAMINE [Concomitant]
     Active Substance: PHENIRAMINE
     Route: 042
     Dates: start: 20210315, end: 20210315
  20. GABIMASH [Concomitant]
     Route: 048
     Dates: start: 20210801
  21. AMANTADINE SULFATE [Concomitant]
     Active Substance: AMANTADINE SULFATE
     Route: 048
     Dates: start: 20221021
  22. DALFAROSIS [Concomitant]
     Route: 048
     Dates: start: 20221021

REACTIONS (2)
  - COVID-19 [Recovered/Resolved with Sequelae]
  - COVID-19 [Recovered/Resolved with Sequelae]

NARRATIVE: CASE EVENT DATE: 20210522
